FAERS Safety Report 12429962 (Version 1)
Quarter: 2016Q2

REPORT INFORMATION
  Report Type: Spontaneous
  Country: US (occurrence: US)
  Receive Date: 20160602
  Receipt Date: 20160602
  Transmission Date: 20160815
  Serious: No
  Sender: FDA-Public Use
  Company Number: US-KADMON PHARMACEUTICALS, LLC-KAD201603-001003

PATIENT
  Sex: Male

DRUGS (1)
  1. RIBAVIRIN. [Suspect]
     Active Substance: RIBAVIRIN
     Route: 048

REACTIONS (5)
  - Psoriasis [Unknown]
  - Drug ineffective [Unknown]
  - Bone disorder [Unknown]
  - Gait disturbance [Unknown]
  - Joint swelling [Unknown]
